FAERS Safety Report 6702311-3 (Version None)
Quarter: 2010Q2

REPORT INFORMATION
  Report Type: 
  Country: None (occurrence: None)
  Receive Date: 20100429
  Receipt Date: 20100427
  Transmission Date: 20101027
  Serious: Yes (Other)
  Sender: FDA-Public Use
  Company Number: US-BRISTOL-MYERS SQUIBB COMPANY-15080773

PATIENT
  Age: 65 Year
  Sex: Male
  Weight: 86 kg

DRUGS (5)
  1. COUMADIN [Suspect]
  2. TOVIAZ [Suspect]
     Indication: HYPERTONIC BLADDER
     Route: 048
     Dates: start: 20091118, end: 20100101
  3. LIPITOR [Concomitant]
     Indication: BLOOD CHOLESTEROL INCREASED
  4. HYZAAR [Concomitant]
     Indication: HYPERTENSION
  5. TEGRETOL-XR [Concomitant]

REACTIONS (6)
  - ABNORMAL DREAMS [None]
  - DRY THROAT [None]
  - FATIGUE [None]
  - INTERNATIONAL NORMALISED RATIO INCREASED [None]
  - LETHARGY [None]
  - SOMNOLENCE [None]
